FAERS Safety Report 9914443 (Version 1)
Quarter: 2014Q1

REPORT INFORMATION
  Report Type: Spontaneous
  Country: US (occurrence: None)
  Receive Date: 20140219
  Receipt Date: 20140219
  Transmission Date: 20141002
  Serious: Yes (Other)
  Sender: FDA-Public Use
  Company Number: None

PATIENT
  Age: 42 Year
  Sex: Female
  Weight: 87.54 kg

DRUGS (2)
  1. MINOCYCLINE [Suspect]
     Indication: ROSACEA
     Dosage: 1 PILL TWICE DAILY
     Route: 048
     Dates: start: 20140212, end: 20140212
  2. MINOCYCLINE [Suspect]
     Indication: ACNE
     Dosage: 1 PILL TWICE DAILY
     Route: 048
     Dates: start: 20140212, end: 20140212

REACTIONS (3)
  - Influenza like illness [None]
  - Tinnitus [None]
  - Influenza [None]
